FAERS Safety Report 8790375 (Version 2)
Quarter: 2012Q4

REPORT INFORMATION
  Report Type: 
  Country: US (occurrence: US)
  Receive Date: 20120917
  Receipt Date: 20120928
  Transmission Date: 20130627
  Serious: Yes (Hospitalization, Other)
  Sender: FDA-Public Use
  Company Number: US-JNJFOC-20120904178

PATIENT
  Age: 44 Year
  Sex: Female
  Weight: 70.31 kg

DRUGS (7)
  1. SIMPONI [Suspect]
     Indication: ANKYLOSING SPONDYLITIS
     Route: 058
     Dates: start: 20120713
  2. CYMBALTA [Concomitant]
     Indication: MAJOR DEPRESSION
     Route: 048
  3. ABILIFY [Concomitant]
     Indication: MAJOR DEPRESSION
     Route: 048
  4. MELOXICAM [Concomitant]
     Indication: PAIN
     Route: 065
     Dates: start: 2009
  5. XANAX [Concomitant]
     Indication: ANXIETY
     Route: 048
  6. METHOTREXATE [Concomitant]
     Indication: ANKYLOSING SPONDYLITIS
     Route: 048
     Dates: start: 201203
  7. FOLIC ACID [Concomitant]
     Route: 048
     Dates: start: 201203

REACTIONS (4)
  - Chest pain [Not Recovered/Not Resolved]
  - Breakthrough pain [Not Recovered/Not Resolved]
  - Device malfunction [Unknown]
  - Drug dose omission [Unknown]
